FAERS Safety Report 9083898 (Version 1)
Quarter: 2013Q1

REPORT INFORMATION
  Report Type: Report from Study
  Country: US (occurrence: US)
  Receive Date: 20130130
  Receipt Date: 20130130
  Transmission Date: 20140127
  Serious: No
  Sender: FDA-Public Use
  Company Number: US-ABBOTT-12P-163-0987876-00

PATIENT
  Age: 79 Year
  Sex: Female

DRUGS (9)
  1. HUMIRA [Suspect]
     Indication: RHEUMATOID ARTHRITIS
     Dates: start: 20120909
  2. PREDNISONE [Suspect]
     Indication: ARTHRALGIA
  3. XANAX [Concomitant]
     Indication: ANXIETY
     Route: 048
  4. ZANTAC [Concomitant]
     Indication: NAUSEA
     Route: 048
  5. FOLIC ACID [Concomitant]
     Indication: ANAEMIA
     Route: 048
  6. ANTIVERT [Concomitant]
     Indication: DIZZINESS
     Route: 048
  7. ANTIVERT [Concomitant]
     Indication: DIZZINESS
  8. BENICAR [Concomitant]
     Indication: BLOOD PRESSURE
     Route: 048
  9. RESTASIS [Concomitant]
     Indication: DRY EYE

REACTIONS (4)
  - Inappropriate schedule of drug administration [Not Recovered/Not Resolved]
  - Drug ineffective [Not Recovered/Not Resolved]
  - Pain [Recovering/Resolving]
  - Bone disorder [Unknown]
